FAERS Safety Report 7939496-7 (Version None)
Quarter: 2011Q4

REPORT INFORMATION
  Report Type: 
  Country: None (occurrence: None)
  Receive Date: 20111125
  Receipt Date: 20111123
  Transmission Date: 20120403
  Serious: Yes (Hospitalization)
  Sender: FDA-Public Use
  Company Number: JP-BAYER-2011-113420

PATIENT
  Age: 83 Year
  Sex: Male

DRUGS (1)
  1. ACETYLSALICYLIC ACID SRT [Suspect]
     Indication: CEREBRAL INFARCTION
     Dosage: DAILY DOSE 100 MG/D

REACTIONS (1)
  - SUBDURAL HAEMATOMA [None]
